FAERS Safety Report 7122538-9 (Version None)
Quarter: 2010Q4

REPORT INFORMATION
  Report Type: 
  Country: None (occurrence: None)
  Receive Date: 20101122
  Receipt Date: 20101122
  Transmission Date: 20110411
  Serious: Yes (Hospitalization)
  Sender: FDA-Public Use
  Company Number: None

PATIENT
  Sex: Female
  Weight: 87.27 kg

DRUGS (9)
  1. CARBOPLATIN [Suspect]
     Dosage: 546 MG
  2. TAXOL [Suspect]
     Dosage: 333 MG
  3. ASPIRIN [Concomitant]
  4. CIPRO [Concomitant]
  5. COMPAZINE [Concomitant]
  6. COREG [Concomitant]
  7. LORTAB [Concomitant]
  8. NEULASTA [Concomitant]
  9. NORVASC [Concomitant]

REACTIONS (2)
  - ABDOMINAL PAIN LOWER [None]
  - ANAEMIA [None]
